FAERS Safety Report 14570337 (Version 4)
Quarter: 2018Q2

REPORT INFORMATION
  Report Type: Spontaneous
  Country: IT (occurrence: IT)
  Receive Date: 20180226
  Receipt Date: 20180402
  Transmission Date: 20180711
  Serious: Yes (Hospitalization, Other)
  Sender: FDA-Public Use
  Company Number: IT-SUN PHARMACEUTICAL INDUSTRIES LTD-2017R1-164296

PATIENT
  Age: 28 Year
  Sex: Female

DRUGS (6)
  1. XANAX [Suspect]
     Active Substance: ALPRAZOLAM
     Indication: PRODUCT USED FOR UNKNOWN INDICATION
     Dosage: 15 MG, TOTAL (TABLETS 1 MG); IN TOTAL
     Route: 048
     Dates: start: 20170426, end: 20170426
  2. XANAX [Suspect]
     Active Substance: ALPRAZOLAM
     Indication: PRODUCT USED FOR UNKNOWN INDICATION
     Dosage: 7.5 MG, TOTAL (0.5MG TABLET); IN TOTAL
     Route: 048
     Dates: start: 20170426, end: 20170426
  3. FLUOXETINA TABLET [Suspect]
     Active Substance: FLUOXETINE HYDROCHLORIDE
     Indication: PRODUCT USED FOR UNKNOWN INDICATION
     Dosage: 20 MG, TOTAL,  IN TOTAL
     Route: 048
     Dates: start: 20170426, end: 20170426
  4. TACHIPIRINA TABLET [Suspect]
     Active Substance: ACETAMINOPHEN
     Indication: PRODUCT USED FOR UNKNOWN INDICATION
     Dosage: 8 G, TOTAL,  IN TOTAL
     Route: 048
     Dates: start: 20170426, end: 20170426
  5. ACTIGRIP TABLET [Suspect]
     Active Substance: ACETAMINOPHEN\PSEUDOEPHEDRINE HYDROCHLORIDE\TRIPROLIDINE HYDROCHLORIDE
     Indication: PRODUCT USED FOR UNKNOWN INDICATION
     Dosage: 12 DF, IN TOTAL
     Route: 048
     Dates: start: 20170426, end: 20170426
  6. CETIRIZINE [Suspect]
     Active Substance: CETIRIZINE HYDROCHLORIDE
     Indication: PRODUCT USED FOR UNKNOWN INDICATION
     Dosage: (100MG) 10 DF, TOTAL; IN TOTAL
     Route: 048
     Dates: start: 20170426, end: 20170426

REACTIONS (4)
  - Overdose [Recovering/Resolving]
  - Intentional self-injury [Recovering/Resolving]
  - Drug abuse [Recovering/Resolving]
  - Suicide attempt [Recovering/Resolving]

NARRATIVE: CASE EVENT DATE: 20170426
